FAERS Safety Report 24282647 (Version 1)
Quarter: 2024Q3

REPORT INFORMATION
  Report Type: Spontaneous
  Country: CA (occurrence: CA)
  Receive Date: 20240904
  Receipt Date: 20240904
  Transmission Date: 20241016
  Serious: Yes (Other)
  Sender: AMPHASTAR
  Company Number: CA-Amphastar Pharmaceuticals, Inc.-2161140

PATIENT

DRUGS (1)
  1. BAQSIMI [Suspect]
     Active Substance: GLUCAGON
     Indication: Blood glucose decreased

REACTIONS (1)
  - Drug ineffective [Recovered/Resolved]
